FAERS Safety Report 8353517-1 (Version None)
Quarter: 2012Q2

REPORT INFORMATION
  Report Type: 
  Country: None (occurrence: None)
  Receive Date: 20120511
  Receipt Date: 20110428
  Transmission Date: 20120825
  Serious: No
  Sender: FDA-Public Use
  Company Number: US-GLAXOSMITHKLINE-A0926503A

PATIENT
  Sex: Female

DRUGS (1)
  1. TYKERB [Suspect]
     Indication: BREAST CANCER FEMALE
     Dosage: 5TAB PER DAY
     Route: 065

REACTIONS (4)
  - RASH [None]
  - DERMATITIS ACNEIFORM [None]
  - SKIN ULCER [None]
  - URTICARIA [None]
